FAERS Safety Report 7250198-5 (Version None)
Quarter: 2011Q1

REPORT INFORMATION
  Report Type: 
  Country: None (occurrence: None)
  Receive Date: 20110128
  Receipt Date: 20110112
  Transmission Date: 20110831
  Serious: Yes (Other)
  Sender: FDA-Public Use
  Company Number: IT-BAYER-2010-004893

PATIENT
  Sex: Male

DRUGS (6)
  1. BENADON [Concomitant]
     Dosage: 600 MG, QD
     Route: 048
     Dates: start: 20100801, end: 20101210
  2. BENADON [Concomitant]
  3. TORADOL [Concomitant]
     Dosage: 2 DF, QD
     Route: 048
     Dates: start: 20100901
  4. NEXAVAR [Suspect]
     Indication: HEPATIC NEOPLASM MALIGNANT NON-RESECTABLE
     Dosage: 800 MG, QD
     Route: 048
     Dates: start: 20100909, end: 20101022
  5. COUMADIN [Concomitant]
     Dosage: UNK
     Dates: start: 20080101
  6. NEXAVAR [Suspect]
     Dosage: 800 MG, QD
     Route: 048
     Dates: start: 20101109

REACTIONS (2)
  - LUNG DISORDER [None]
  - PLEURAL EFFUSION [None]
